FAERS Safety Report 18676717 (Version 1)
Quarter: 2020Q4

REPORT INFORMATION
  Report Type: Spontaneous
  Country: CN (occurrence: CN)
  Receive Date: 20201229
  Receipt Date: 20201229
  Transmission Date: 20210114
  Serious: Yes (Hospitalization)
  Sender: FDA-Public Use
  Company Number: CN-PFIZER INC-2020508813

PATIENT
  Age: 39 Year
  Sex: Female
  Weight: 55 kg

DRUGS (7)
  1. MING ZHU XIN [Suspect]
     Active Substance: VALACYCLOVIR HYDROCHLORIDE
     Indication: POST HERPETIC NEURALGIA
     Dosage: 300 ML, 2X/DAY (BEFORE MEAL)
     Route: 048
     Dates: start: 20201121, end: 20201224
  2. GANCICLOVIR. [Suspect]
     Active Substance: GANCICLOVIR
     Indication: POST HERPETIC NEURALGIA
     Dosage: 0.25 G, 1X/DAY
     Route: 041
     Dates: start: 20201121, end: 20201124
  3. METHYCOBAL [Suspect]
     Active Substance: METHYLCOBALAMIN
     Indication: POST HERPETIC NEURALGIA
     Dosage: 0.5 MG, 1X/DAY
     Route: 030
     Dates: start: 20201121, end: 20201124
  4. LYRICA [Suspect]
     Active Substance: PREGABALIN
     Indication: POST HERPETIC NEURALGIA
     Dosage: 75 MG, 3X/DAY
     Route: 048
     Dates: start: 20201121, end: 20201124
  5. SODIUM CHLORIDE. [Suspect]
     Active Substance: SODIUM CHLORIDE
     Indication: POST HERPETIC NEURALGIA
     Dosage: 250 ML, 1X/DAY
     Route: 041
     Dates: start: 20201121, end: 20201124
  6. JAFERON [Suspect]
     Active Substance: INTERFERON ALFA-2B
     Indication: POST HERPETIC NEURALGIA
     Dosage: 20 ML, 4X/DAY
     Route: 061
     Dates: start: 20201121, end: 20201124
  7. MECOBALAMIN [Suspect]
     Active Substance: METHYLCOBALAMIN
     Indication: POST HERPETIC NEURALGIA
     Dosage: 0.5 MG, 3X/DAY
     Route: 048
     Dates: start: 20201121, end: 20201124

REACTIONS (3)
  - Herpes zoster [Recovering/Resolving]
  - Condition aggravated [Recovering/Resolving]
  - Pallor [Recovering/Resolving]

NARRATIVE: CASE EVENT DATE: 202011
